FAERS Safety Report 9052882 (Version 1)
Quarter: 2013Q1

REPORT INFORMATION
  Report Type: Spontaneous
  Country: MY (occurrence: MY)
  Receive Date: 20130207
  Receipt Date: 20130207
  Transmission Date: 20140127
  Serious: Yes (Hospitalization)
  Sender: FDA-Public Use
  Company Number: MY-MYLANLABS-2013S1002333

PATIENT
  Age: 3 Year
  Sex: 0

DRUGS (1)
  1. MALATHION [Suspect]
     Indication: LICE INFESTATION

REACTIONS (3)
  - Convulsion [Recovered/Resolved]
  - Abdominal pain [Recovered/Resolved]
  - Vomiting [Recovered/Resolved]
